FAERS Safety Report 15695740 (Version 1)
Quarter: 2018Q4

REPORT INFORMATION
  Report Type: Spontaneous
  Country: FR (occurrence: FR)
  Receive Date: 20181206
  Receipt Date: 20181206
  Transmission Date: 20190205
  Serious: Yes (Other)
  Sender: FDA-Public Use
  Company Number: FR-BAYER-2018-221763

PATIENT
  Age: 36 Year
  Sex: Female

DRUGS (2)
  1. BEVACIZUMAB. [Concomitant]
     Active Substance: BEVACIZUMAB
     Dosage: UNK
  2. STIVARGA [Suspect]
     Active Substance: REGORAFENIB
     Indication: RECTAL ADENOCARCINOMA
     Dosage: 3 TABLET PER DAY 3WEEKS ON 4 AND THEN 2 TABLET PER DAY
     Dates: start: 201801, end: 201809

REACTIONS (3)
  - Palmar-plantar erythrodysaesthesia syndrome [None]
  - Rectal adenocarcinoma [None]
  - Off label use [None]
